FAERS Safety Report 9179402 (Version 2)
Quarter: 2013Q2

REPORT INFORMATION
  Report Type: Spontaneous
  Country: US (occurrence: US)
  Receive Date: 20130321
  Receipt Date: 20130425
  Transmission Date: 20140414
  Serious: Yes (Death)
  Sender: FDA-Public Use
  Company Number: US-ALEXION-A201300445

PATIENT
  Sex: Male
  Weight: 69 kg

DRUGS (22)
  1. MUCINEX D [Concomitant]
     Dosage: 600 MG-60 MG, Q12H
     Route: 048
  2. PREDNISONE [Concomitant]
     Dosage: 40 MG, AS DIRECTED
     Route: 048
  3. PREDNISONE [Concomitant]
     Dosage: 20 MG, AS DIRECTED
  4. PRILOSEC [Concomitant]
     Dosage: 20 MG, QD
     Route: 048
  5. SYMBICORT [Concomitant]
     Dosage: 80-4.5 MCG AS DIRECTED
  6. XANAX [Concomitant]
     Dosage: 0.5 MG, QD
     Route: 048
  7. LEVAQUIN [Concomitant]
     Dosage: 500 MG, QD
     Route: 048
  8. METFORMIN [Concomitant]
     Dosage: 500 MG, BID
     Route: 048
  9. PAXIL [Concomitant]
     Dosage: 20 MG, QD
     Route: 048
  10. TAMSULOSINE HCL [Concomitant]
     Dosage: 0.4 MG, QD
     Route: 048
  11. LUPRON [Concomitant]
     Dosage: UNK
     Dates: start: 20101103
  12. DESFERAL [Concomitant]
     Dosage: UNK, WEEKLY
     Route: 030
  13. SOLIRIS 300MG [Suspect]
     Indication: PAROXYSMAL NOCTURNAL HAEMOGLOBINURIA
     Dosage: UNK
     Route: 042
     Dates: start: 20101025, end: 201103
  14. FLOMAX [Concomitant]
     Dosage: 0.4 MG, QD
     Route: 048
     Dates: start: 201011
  15. CITRACAL + D [Concomitant]
     Dosage: 200 MG, QD
     Route: 048
  16. DETROL LA [Concomitant]
     Dosage: 4 MG, QD
     Route: 048
  17. ENALAPRIL MALEATE [Concomitant]
     Dosage: 10 MG, QD
     Route: 048
  18. FOLIC ACID [Concomitant]
     Dosage: 1 MG, QD
     Route: 048
  19. INSULIN REGULAR [Concomitant]
     Dosage: SLIDING SCALE, BEFORE MEALS, AND HS
     Route: 058
  20. LANTUS [Concomitant]
     Dosage: 10 IU, QD HS
     Route: 058
  21. LANTUS [Concomitant]
     Dosage: 14 IU, QD HS
     Route: 058
  22. LANTUS [Concomitant]
     Dosage: 18 IU, QD HS

REACTIONS (2)
  - Death [Fatal]
  - Deep vein thrombosis [Unknown]
